FAERS Safety Report 6267332-6 (Version None)
Quarter: 2009Q3

REPORT INFORMATION
  Report Type: 
  Country: None (occurrence: None)
  Receive Date: 20090714
  Receipt Date: 20090706
  Transmission Date: 20100115
  Serious: Yes (Disabling, Other)
  Sender: FDA-Public Use
  Company Number: A0777115A

PATIENT
  Age: 23 Year
  Sex: Female

DRUGS (2)
  1. VALTREX [Suspect]
     Indication: GENITAL HERPES
     Dosage: 500TAB PER DAY
     Route: 048
  2. YAZ [Concomitant]

REACTIONS (4)
  - ANTINUCLEAR ANTIBODY POSITIVE [None]
  - LYME DISEASE [None]
  - NEUTROPHIL COUNT DECREASED [None]
  - SOMNOLENCE [None]
